FAERS Safety Report 9171289 (Version 3)
Quarter: 2013Q2

REPORT INFORMATION
  Report Type: Spontaneous
  Country: IT (occurrence: IT)
  Receive Date: 20130319
  Receipt Date: 20130424
  Transmission Date: 20140414
  Serious: Yes (Hospitalization)
  Sender: FDA-Public Use
  Company Number: IT-ROCHE-1203220

PATIENT
  Age: 56 Year
  Sex: Male

DRUGS (2)
  1. COPEGUS [Suspect]
     Indication: HEPATITIS C
     Route: 048
     Dates: start: 20130115, end: 20130315
  2. PEGINTRON [Suspect]
     Indication: HEPATITIS C
     Route: 048
     Dates: start: 20130115, end: 20130315

REACTIONS (3)
  - Psychomotor hyperactivity [Recovering/Resolving]
  - Agitation [Recovering/Resolving]
  - Syncope [Recovering/Resolving]
